FAERS Safety Report 4883778-2 (Version None)
Quarter: 2006Q1

REPORT INFORMATION
  Report Type: 
  Country: None (occurrence: None)
  Receive Date: 20060113
  Receipt Date: 20051223
  Transmission Date: 20060701
  Serious: No
  Sender: FDA-Public Use
  Company Number: US200512004079

PATIENT
  Age: 27 Year
  Sex: Female

DRUGS (6)
  1. CYMBALTA [Suspect]
     Indication: DEPRESSION
     Dosage: SEE IMAGE
     Route: 048
     Dates: start: 20051104
  2. LIPITOR [Concomitant]
  3. PROTONIX [Concomitant]
  4. NECON (ETHINYLESTRADIOL, NORETHISTERONE) [Concomitant]
  5. ZOLOFT [Concomitant]
  6. EFFEXOR [Concomitant]

REACTIONS (1)
  - CHROMATURIA [None]
